FAERS Safety Report 4676826-6 (Version None)
Quarter: 2005Q2

REPORT INFORMATION
  Report Type: 
  Country: None (occurrence: None)
  Receive Date: 20050527
  Receipt Date: 20050519
  Transmission Date: 20051028
  Serious: Yes (Death, Hospitalization)
  Sender: FDA-Public Use
  Company Number: US-2005-004366

PATIENT
  Age: 51 Year
  Sex: Female

DRUGS (10)
  1. BETASERON [Suspect]
     Indication: MULTIPLE SCLEROSIS
     Dosage: 8 MUI, SUBCUTANEOUS
     Route: 058
     Dates: start: 19990101, end: 20050107
  2. ZANAFLEX [Concomitant]
  3. LEXAPRO [Concomitant]
  4. LASIX [Concomitant]
  5. VALIUM [Concomitant]
  6. ATARAX [Concomitant]
  7. VISTARIL [Concomitant]
  8. MS CONTIN [Concomitant]
  9. PREMARIN [Concomitant]
  10. REQUIP [Concomitant]

REACTIONS (2)
  - CONVULSION [None]
  - PROGRESSIVE MULTIPLE SCLEROSIS [None]
